FAERS Safety Report 7194264-1 (Version None)
Quarter: 2010Q4

REPORT INFORMATION
  Report Type: 
  Country: None (occurrence: None)
  Receive Date: 20101223
  Receipt Date: 20101221
  Transmission Date: 20110411
  Serious: No
  Sender: FDA-Public Use
  Company Number: US-AMGEN-TCS430130

PATIENT

DRUGS (11)
  1. ENBREL [Suspect]
     Indication: RHEUMATOID ARTHRITIS
     Dosage: 50 MG, QWK
     Route: 058
     Dates: start: 20100511
  2. ZOSTAVAX [Suspect]
     Dosage: UNK
     Dates: start: 20100101
  3. PREDNISONE [Concomitant]
     Dosage: UNK
  4. OMEPRAZOLE [Concomitant]
     Dosage: UNK
  5. METFORMIN [Concomitant]
     Dosage: UNK
  6. METOCLOPRAMIDE [Concomitant]
     Dosage: UNK
  7. ATENOLOL [Concomitant]
     Dosage: UNK
  8. CONJUGATED ESTROGEN [Concomitant]
     Dosage: UNK
  9. INSULIN [Concomitant]
     Dosage: UNK
  10. HYDROCODONE BITARTRATE [Concomitant]
     Dosage: UNK
  11. MONTELUKAST [Concomitant]
     Dosage: UNK

REACTIONS (6)
  - ADVERSE DRUG REACTION [None]
  - ALOPECIA [None]
  - INJECTION SITE REACTION [None]
  - INJECTION SITE URTICARIA [None]
  - OEDEMA PERIPHERAL [None]
  - SKIN REACTION [None]
